FAERS Safety Report 5488300-8 (Version None)
Quarter: 2007Q4

REPORT INFORMATION
  Report Type: 
  Country: None (occurrence: None)
  Receive Date: 20071005
  Receipt Date: 20070608
  Transmission Date: 20080405
  Serious: Yes (Other)
  Sender: FDA-Public Use
  Company Number: PHEH2007US08628

PATIENT
  Age: 68 Year
  Sex: Female

DRUGS (3)
  1. TEKTURNA [Suspect]
     Indication: HYPERTENSION
     Dosage: 150 MG, ORAL; 300 MG, ORAL
     Route: 048
     Dates: start: 20070507, end: 20070524
  2. TEKTURNA [Suspect]
     Indication: HYPERTENSION
     Dosage: 150 MG, ORAL; 300 MG, ORAL
     Route: 048
     Dates: start: 20070525
  3. DIOVAN [Concomitant]

REACTIONS (1)
  - ANGIOEDEMA [None]
